FAERS Safety Report 7980458-1 (Version None)
Quarter: 2011Q4

REPORT INFORMATION
  Report Type: 
  Country: None (occurrence: None)
  Receive Date: 20111214
  Receipt Date: 20111209
  Transmission Date: 20120403
  Serious: Yes (Other)
  Sender: FDA-Public Use
  Company Number: TH-VIIV HEALTHCARE LIMITED-A0949603A

PATIENT
  Sex: Female
  Weight: 55 kg

DRUGS (9)
  1. RITONAVIR [Suspect]
     Indication: HIV INFECTION
     Dosage: 150MG PER DAY
     Dates: start: 20101104, end: 20110214
  2. TRUVADA [Suspect]
     Indication: HIV INFECTION
     Dates: start: 20101104, end: 20110214
  3. EFAVIRENZ [Suspect]
     Indication: HIV INFECTION
     Dates: start: 20100309
  4. DEXTROMETHORPHAN HYDROBROMIDE [Concomitant]
     Indication: UPPER RESPIRATORY TRACT INFECTION
     Dates: start: 20101229, end: 20101230
  5. AZT [Concomitant]
  6. LAMIVUDINE(PEPFAR) [Suspect]
     Indication: HIV INFECTION
     Dates: start: 20100309
  7. ATAZANAVIR [Suspect]
     Indication: HIV INFECTION
     Dates: start: 20101104, end: 20110214
  8. ACETAMINOPHEN [Concomitant]
     Indication: UPPER RESPIRATORY TRACT INFECTION
     Dates: start: 20101228, end: 20101230
  9. ALESSE [Concomitant]
     Indication: CONTRACEPTION
     Dates: start: 20091201

REACTIONS (5)
  - ABORTION THREATENED [None]
  - PREMATURE RUPTURE OF MEMBRANES [None]
  - UNINTENDED PREGNANCY [None]
  - MATERNAL EXPOSURE DURING PREGNANCY [None]
  - DRUG INTERACTION [None]
